FAERS Safety Report 25131315 (Version 1)
Quarter: 2025Q1

REPORT INFORMATION
  Report Type: Other
  Country: US (occurrence: US)
  Receive Date: 20250327
  Receipt Date: 20250327
  Transmission Date: 20250409
  Serious: Yes (Other)
  Sender: LYNE LABORATORIES
  Company Number: US-Lyne Laboratories Inc.-2173775

PATIENT
  Age: 34 Year
  Sex: Male

DRUGS (5)
  1. TRIAMCINOLONE ACETONIDE [Suspect]
     Active Substance: TRIAMCINOLONE ACETONIDE
     Indication: Alopecia areata
  2. MINOXIDIL [Concomitant]
     Active Substance: MINOXIDIL
  3. RUXOLITINIB [Concomitant]
     Active Substance: RUXOLITINIB
  4. FINASTERIDE [Concomitant]
     Active Substance: FINASTERIDE
  5. CLOBETASOL PROPIONATE [Concomitant]
     Active Substance: CLOBETASOL PROPIONATE

REACTIONS (2)
  - Central serous chorioretinopathy [Recovering/Resolving]
  - Product use in unapproved indication [Unknown]
